FAERS Safety Report 5109241-1 (Version None)
Quarter: 2006Q3

REPORT INFORMATION
  Report Type: 
  Country: None (occurrence: None)
  Receive Date: 20060920
  Receipt Date: 20060915
  Transmission Date: 20061208
  Serious: Yes (Death)
  Sender: FDA-Public Use
  Company Number: CH-JNJFOC-20060904081

PATIENT
  Sex: Female

DRUGS (5)
  1. REMINYL [Suspect]
     Indication: DEMENTIA
     Route: 048
  2. DEROXATE [Concomitant]
     Indication: DEPRESSION
     Route: 065
  3. ALDACTONE [Concomitant]
     Indication: CARDIAC FAILURE
     Route: 065
  4. LASIX [Concomitant]
     Indication: CARDIAC FAILURE
     Route: 065
  5. LISOPRIL [Concomitant]
     Indication: CARDIAC FAILURE
     Route: 048

REACTIONS (1)
  - DEATH [None]
